FAERS Safety Report 18042411 (Version 6)
Quarter: 2021Q3

REPORT INFORMATION
  Report Type: Report from Study
  Country: None (occurrence: US)
  Receive Date: 20200720
  Receipt Date: 20210720
  Transmission Date: 20211014
  Serious: Yes (Hospitalization, Other)
  Sender: FDA-Public Use
  Company Number: US-ABBVIE-20K-163-3360121-00

PATIENT
  Age: 67 Year
  Sex: Female
  Weight: 122.58 kg

DRUGS (26)
  1. FAMOTIDINE. [Concomitant]
     Active Substance: FAMOTIDINE
     Indication: GASTROOESOPHAGEAL REFLUX DISEASE
  2. LAMOTRIGINE. [Concomitant]
     Active Substance: LAMOTRIGINE
     Indication: HEADACHE
  3. HUMIRA [Suspect]
     Active Substance: ADALIMUMAB
     Route: 058
  4. BUSPIRONE [Concomitant]
     Active Substance: BUSPIRONE HYDROCHLORIDE
     Indication: ANXIETY
  5. VITAMIN D [Concomitant]
     Active Substance: VITAMIN D NOS
     Indication: PRODUCT USED FOR UNKNOWN INDICATION
  6. ALLOPURINOL. [Concomitant]
     Active Substance: ALLOPURINOL
     Indication: GOUT
  7. TRAMADOL. [Concomitant]
     Active Substance: TRAMADOL
     Indication: PAIN
  8. FLONASE [Concomitant]
     Active Substance: FLUTICASONE PROPIONATE
     Indication: PRODUCT USED FOR UNKNOWN INDICATION
  9. ZEASORB [Concomitant]
     Active Substance: MICONAZOLE NITRATE
     Indication: PRODUCT USED FOR UNKNOWN INDICATION
  10. HUMIRA [Suspect]
     Active Substance: ADALIMUMAB
     Route: 058
  11. ADVAIR DISKUS [Concomitant]
     Active Substance: FLUTICASONE PROPIONATE\SALMETEROL XINAFOATE
     Indication: ASTHMA
  12. HUMIRA [Suspect]
     Active Substance: ADALIMUMAB
     Indication: HIDRADENITIS
     Route: 058
     Dates: start: 20160413
  13. FAMOTIDINE. [Concomitant]
     Active Substance: FAMOTIDINE
     Indication: GASTROOESOPHAGEAL REFLUX DISEASE
  14. INCRUSE ELLIPTA [Concomitant]
     Active Substance: UMECLIDINIUM BROMIDE
     Indication: CHRONIC OBSTRUCTIVE PULMONARY DISEASE
  15. LORAZEPAM. [Concomitant]
     Active Substance: LORAZEPAM
     Indication: PANIC ATTACK
  16. BUSPIRONE [Concomitant]
     Active Substance: BUSPIRONE HYDROCHLORIDE
     Indication: PANIC ATTACK
  17. BUSPIRONE [Concomitant]
     Active Substance: BUSPIRONE HYDROCHLORIDE
     Indication: DEPRESSION
  18. FUROSEMIDE. [Concomitant]
     Active Substance: FUROSEMIDE
     Indication: OEDEMA
  19. BLACK SEED [Concomitant]
     Active Substance: UNSPECIFIED INGREDIENT
     Indication: CARDIOMEGALY
  20. VITAMIN B12 [Concomitant]
     Active Substance: CYANOCOBALAMIN
     Indication: VITAMIN B12 DECREASED
  21. MECLIZINE [Concomitant]
     Active Substance: MECLIZINE HYDROCHLORIDE
     Indication: VERTIGO
  22. PAROXETINE. [Concomitant]
     Active Substance: PAROXETINE
     Indication: DEPRESSION
  23. LORAZEPAM. [Concomitant]
     Active Substance: LORAZEPAM
     Indication: ANXIETY
  24. LORAZEPAM. [Concomitant]
     Active Substance: LORAZEPAM
     Indication: NERVOUSNESS
  25. ALLOPURINOL. [Concomitant]
     Active Substance: ALLOPURINOL
     Indication: CHRONIC KIDNEY DISEASE
  26. RESTASIS [Concomitant]
     Active Substance: CYCLOSPORINE
     Indication: DRY EYE

REACTIONS (44)
  - Oxygen saturation abnormal [Unknown]
  - Secretion discharge [Recovering/Resolving]
  - Melanocytic naevus [Not Recovered/Not Resolved]
  - Musculoskeletal disorder [Recovering/Resolving]
  - Mobility decreased [Unknown]
  - Dysphagia [Unknown]
  - Dry eye [Unknown]
  - Dry mouth [Unknown]
  - Bronchitis [Recovered/Resolved]
  - Basal cell carcinoma [Recovered/Resolved]
  - Respiratory tract haemorrhage [Unknown]
  - Axillary pain [Unknown]
  - Anxiety [Unknown]
  - Pain in extremity [Unknown]
  - Lymphadenopathy [Unknown]
  - Overweight [Unknown]
  - Sleep apnoea syndrome [Unknown]
  - Scoliosis [Unknown]
  - Depression [Unknown]
  - Basal cell carcinoma [Unknown]
  - Cerebral atrophy [Recovering/Resolving]
  - Spinal stenosis [Unknown]
  - Oral pain [Recovering/Resolving]
  - Fall [Unknown]
  - Chronic obstructive pulmonary disease [Recovered/Resolved]
  - Nasopharyngitis [Recovered/Resolved]
  - Hypertension [Unknown]
  - Purulent discharge [Unknown]
  - Gait disturbance [Unknown]
  - Respiratory disorder [Unknown]
  - Fall [Recovered/Resolved]
  - Micrographic skin surgery [Recovered/Resolved]
  - Weight increased [Not Recovered/Not Resolved]
  - Aphasia [Unknown]
  - Chronic kidney disease [Unknown]
  - Stress [Not Recovered/Not Resolved]
  - Candida infection [Unknown]
  - Nail infection [Unknown]
  - Laryngitis [Unknown]
  - Neoplasm malignant [Recovered/Resolved]
  - Memory impairment [Unknown]
  - Panic attack [Unknown]
  - Fall [Unknown]
  - Arthralgia [Recovering/Resolving]

NARRATIVE: CASE EVENT DATE: 201807
